FAERS Safety Report 6219204-0 (Version None)
Quarter: 2009Q2

REPORT INFORMATION
  Report Type: 
  Country: None (occurrence: None)
  Receive Date: 20090609
  Receipt Date: 20090603
  Transmission Date: 20091009
  Serious: Yes (Other)
  Sender: FDA-Public Use
  Company Number: AU-BRISTOL-MYERS SQUIBB COMPANY-14631923

PATIENT

DRUGS (5)
  1. KARVEA [Suspect]
     Dosage: RESTARTED ON UNKNOWN DATE
     Route: 048
     Dates: end: 20081001
  2. KARVEZIDE [Suspect]
     Dates: start: 20081002, end: 20090111
  3. CRESTOR [Concomitant]
     Dates: start: 20081002, end: 20090111
  4. PREDNISOLONE [Concomitant]
  5. SULFUR [Concomitant]

REACTIONS (3)
  - FATIGUE [None]
  - OEDEMA PERIPHERAL [None]
  - ORGANISING PNEUMONIA [None]
